FAERS Safety Report 23098455 (Version 1)
Quarter: 2023Q4

REPORT INFORMATION
  Report Type: Spontaneous
  Country: FR (occurrence: FR)
  Receive Date: 20231023
  Receipt Date: 20231023
  Transmission Date: 20240109
  Serious: Yes (Life-Threatening)
  Sender: FDA-Public Use
  Company Number: None

PATIENT
  Age: 52 Year
  Sex: Female

DRUGS (6)
  1. METHYLPREDNISOLONE SODIUM SUCCINATE [Suspect]
     Active Substance: METHYLPREDNISOLONE SODIUM SUCCINATE
     Dosage: UNK
     Route: 042
     Dates: start: 20221201, end: 20221201
  2. TRANEXAMIC ACID [Concomitant]
     Active Substance: TRANEXAMIC ACID
  3. ALFENTANIL [Concomitant]
     Active Substance: ALFENTANIL
  4. ATRACURIUM [Concomitant]
     Active Substance: ATRACURIUM
  5. CEFAZOLIN [Concomitant]
     Active Substance: CEFAZOLIN
  6. PROPOFOL [Concomitant]
     Active Substance: PROPOFOL

REACTIONS (1)
  - Anaphylactic shock [Recovered/Resolved]

NARRATIVE: CASE EVENT DATE: 20221201
